FAERS Safety Report 20901984 (Version 3)
Quarter: 2022Q2

REPORT INFORMATION
  Report Type: Spontaneous
  Country: ES (occurrence: ES)
  Receive Date: 20220601
  Receipt Date: 20220602
  Transmission Date: 20220721
  Serious: Yes (Other)
  Sender: FDA-Public Use
  Company Number: ES-LUPIN PHARMACEUTICALS INC.-2022-07830

PATIENT
  Age: 63 Year

DRUGS (14)
  1. AZACITIDINE [Suspect]
     Active Substance: AZACITIDINE
     Indication: Myeloproliferative neoplasm
     Dosage: UNK
     Route: 065
  2. AZACITIDINE [Suspect]
     Active Substance: AZACITIDINE
     Indication: Acute myeloid leukaemia refractory
  3. MITOXANTRONE [Suspect]
     Active Substance: MITOXANTRONE HYDROCHLORIDE
     Indication: Myeloproliferative neoplasm
     Dosage: UNK
     Route: 065
  4. MITOXANTRONE [Suspect]
     Active Substance: MITOXANTRONE HYDROCHLORIDE
     Indication: Acute myeloid leukaemia
  5. ETOPOSIDE [Suspect]
     Active Substance: ETOPOSIDE
     Indication: Myeloproliferative neoplasm
     Dosage: UNK
     Route: 065
  6. ETOPOSIDE [Suspect]
     Active Substance: ETOPOSIDE
     Indication: Acute myeloid leukaemia
  7. CYTARABINE [Suspect]
     Active Substance: CYTARABINE
     Indication: Myeloproliferative neoplasm
     Dosage: UNK
     Route: 065
  8. CYTARABINE [Suspect]
     Active Substance: CYTARABINE
     Indication: Acute myeloid leukaemia
  9. ADRIAMYCIN [Suspect]
     Active Substance: DOXORUBICIN HYDROCHLORIDE
     Indication: Myeloproliferative neoplasm
     Dosage: UNK
     Route: 065
  10. ADRIAMYCIN [Suspect]
     Active Substance: DOXORUBICIN HYDROCHLORIDE
     Indication: Acute myeloid leukaemia refractory
  11. NIVOLUMAB [Suspect]
     Active Substance: NIVOLUMAB
     Indication: Myeloproliferative neoplasm
     Dosage: UNK
     Route: 065
  12. NIVOLUMAB [Suspect]
     Active Substance: NIVOLUMAB
     Indication: Acute myeloid leukaemia refractory
  13. PEMIGATINIB [Concomitant]
     Active Substance: PEMIGATINIB
     Indication: Myeloproliferative neoplasm
     Dosage: UNK
     Route: 065
  14. PEMIGATINIB [Concomitant]
     Active Substance: PEMIGATINIB
     Indication: Acute myeloid leukaemia

REACTIONS (2)
  - Therapy non-responder [Unknown]
  - Off label use [Unknown]
